FAERS Safety Report 9819337 (Version 1)
Quarter: 2014Q1

REPORT INFORMATION
  Report Type: Spontaneous
  Country: US (occurrence: US)
  Receive Date: 20140115
  Receipt Date: 20140115
  Transmission Date: 20141002
  Serious: Yes (Hospitalization, Other)
  Sender: FDA-Public Use
  Company Number: US-PFIZER INC-2014010222

PATIENT
  Age: 56 Year
  Sex: Female
  Weight: 59 kg

DRUGS (4)
  1. CYTOMEL [Suspect]
     Dosage: UNK
  2. SYNTHROID [Suspect]
     Dosage: UNK
  3. ARMOUR THYROID [Suspect]
     Dosage: UNK
  4. TIROSINT [Concomitant]
     Dosage: 75 UG, UNK

REACTIONS (6)
  - Chest pain [Unknown]
  - Autoimmune thyroiditis [Unknown]
  - Feeling abnormal [Unknown]
  - Urticaria [Recovered/Resolved]
  - Scar [Unknown]
  - Weight increased [Unknown]
